FAERS Safety Report 14036409 (Version 2)
Quarter: 2018Q2

REPORT INFORMATION
  Report Type: Spontaneous
  Country: US (occurrence: US)
  Receive Date: 20171003
  Receipt Date: 20180410
  Transmission Date: 20180711
  Serious: Yes (Other)
  Sender: FDA-Public Use
  Company Number: US-ROCHE-1995662

PATIENT
  Age: 61 Year
  Sex: Female
  Weight: 66.74 kg

DRUGS (9)
  1. OCREVUS [Suspect]
     Active Substance: OCRELIZUMAB
     Route: 042
     Dates: start: 201709
  2. PHENYTOIN. [Concomitant]
     Active Substance: PHENYTOIN
     Indication: NYSTAGMUS
     Dosage: ONGOING: YES
     Route: 065
  3. ESTRADIOL. [Concomitant]
     Active Substance: ESTRADIOL
     Dosage: ONGOING: YES
     Route: 065
  4. CITALOPRAM [Concomitant]
     Active Substance: CITALOPRAM HYDROBROMIDE
     Indication: DEPRESSION
     Dosage: ONGOING: YES
     Route: 065
  5. OCREVUS [Suspect]
     Active Substance: OCRELIZUMAB
     Indication: MULTIPLE SCLEROSIS RELAPSE
     Dosage: UNKNOWN
     Route: 042
     Dates: start: 20170913
  6. CLONAZEPAM. [Suspect]
     Active Substance: CLONAZEPAM
     Indication: ANXIETY
     Dosage: ONGOING: YES
     Route: 065
  7. GABAPENTIN. [Concomitant]
     Active Substance: GABAPENTIN
     Indication: MYALGIA
     Dosage: ONGOING: YES
     Route: 065
  8. OCREVUS [Suspect]
     Active Substance: OCRELIZUMAB
     Route: 042
     Dates: start: 201803
  9. BUPROPION. [Concomitant]
     Active Substance: BUPROPION
     Dosage: ONGOING: YES
     Route: 065

REACTIONS (13)
  - Compression fracture [Unknown]
  - Influenza like illness [Not Recovered/Not Resolved]
  - Eye movement disorder [Not Recovered/Not Resolved]
  - Throat irritation [Recovered/Resolved]
  - Ear swelling [Recovered/Resolved]
  - Osteoporosis [Unknown]
  - Fall [Unknown]
  - Ear pruritus [Recovered/Resolved]
  - Eye pruritus [Recovered/Resolved]
  - Dizziness [Not Recovered/Not Resolved]
  - Erythema [Recovered/Resolved]
  - Eye irritation [Recovered/Resolved]
  - Lacrimation increased [Recovered/Resolved]

NARRATIVE: CASE EVENT DATE: 201709
